FAERS Safety Report 6645834-8 (Version None)
Quarter: 2010Q1

REPORT INFORMATION
  Report Type: 
  Country: None (occurrence: None)
  Receive Date: 20100318
  Receipt Date: 20100312
  Transmission Date: 20100710
  Serious: Yes (Other)
  Sender: FDA-Public Use
  Company Number: A0849915A

PATIENT
  Age: 70 Year
  Sex: Female

DRUGS (1)
  1. ASPIRIN + CAFFEINE + SALICYLAMIDE (FORMULATION UNKNOWN) (ASPIRIN+CAFFE [Suspect]
     Indication: DRUG USE FOR UNKNOWN INDICATION
     Dosage: 40

REACTIONS (2)
  - GASTRIC HAEMORRHAGE [None]
  - OVERDOSE [None]
